FAERS Safety Report 4493057-3 (Version None)
Quarter: 2004Q4

REPORT INFORMATION
  Report Type: 
  Country: None (occurrence: None)
  Receive Date: 20041101
  Receipt Date: 20041025
  Transmission Date: 20050328
  Serious: Yes (Death, Hospitalization)
  Sender: FDA-Public Use
  Company Number: 209195

PATIENT
  Age: 75 Year
  Sex: Female

DRUGS (7)
  1. RITUXIMAB (RITUXIMAB) CONC FOR SOLUTION FOR INFUSION [Suspect]
     Indication: CHRONIC LYMPHOCYTIC LEUKAEMIA
     Dosage: 500  MG/M2, INTRAVENOUS
     Route: 042
     Dates: start: 20031203, end: 20040301
  2. FLUDARABINE PHOSPHATE [Suspect]
     Indication: CHRONIC LYMPHOCYTIC LEUKAEMIA
     Dosage: 25 MG/M2, INTRAVENOUS
     Route: 042
     Dates: start: 20031204, end: 20040303
  3. CYCLOPHOSPHAMIDE [Suspect]
     Indication: CHRONIC LYMPHOCYTIC LEUKAEMIA
     Dosage: 250 MG/M2 , INTRAVENOUS
     Route: 042
     Dates: start: 20031204, end: 20040303
  4. ACETAMINOPHEN [Concomitant]
  5. PREDNISONE [Concomitant]
  6. FOLIC ACID [Concomitant]
  7. LANSOPRAZOLE [Concomitant]

REACTIONS (13)
  - ACUTE RESPIRATORY FAILURE [None]
  - ANAEMIA [None]
  - ANTI-ERYTHROCYTE ANTIBODY POSITIVE [None]
  - BLOOD CREATININE INCREASED [None]
  - COAGULOPATHY [None]
  - DRUG EFFECT DECREASED [None]
  - GENERAL PHYSICAL HEALTH DETERIORATION [None]
  - HAEMATURIA [None]
  - HAEMOLYSIS [None]
  - INFECTION [None]
  - NEUTROPENIA [None]
  - PNEUMOCYSTIS CARINII PNEUMONIA [None]
  - PNEUMONIA PRIMARY ATYPICAL [None]
